FAERS Safety Report 5475678-4 (Version None)
Quarter: 2007Q4

REPORT INFORMATION
  Report Type: 
  Country: None (occurrence: None)
  Receive Date: 20071003
  Receipt Date: 20071003
  Transmission Date: 20080405
  Serious: Yes (Other)
  Sender: FDA-Public Use
  Company Number: None

PATIENT
  Age: 60 Year
  Sex: Female
  Weight: 56.6996 kg

DRUGS (2)
  1. LIDOCAINE AND PRILOCAINE CREAM 2.5%/2.5% [Suspect]
     Indication: ANAESTHESIA
     Dosage: APPLY 1 HR BEFORE TOPICAL
     Route: 061
     Dates: start: 20070501
  2. LEVOTHYROXINE SODIUM [Concomitant]

REACTIONS (1)
  - DRUG INEFFECTIVE [None]
